FAERS Safety Report 7412140-3 (Version None)
Quarter: 2011Q2

REPORT INFORMATION
  Report Type: 
  Country: None (occurrence: None)
  Receive Date: 20110413
  Receipt Date: 20110318
  Transmission Date: 20111010
  Serious: Yes (Hospitalization)
  Sender: FDA-Public Use
  Company Number: US-BAYER-2010-003207

PATIENT
  Age: 28 Year
  Sex: Female
  Weight: 51 kg

DRUGS (5)
  1. YAZ [Suspect]
     Indication: CONTRACEPTION
     Dosage: UNK
     Dates: start: 20040101, end: 20060501
  2. YAZ [Suspect]
     Dosage: UNK
  3. POTASSIUM CHLORIDE [Concomitant]
     Dosage: 20 MEQ, QD
  4. ALPRAZOLAM [Concomitant]
     Dosage: 0.25 MG, PRN
  5. IBUPROFEN [Concomitant]
     Indication: MUSCLE SPASMS

REACTIONS (14)
  - GALLBLADDER DISORDER [None]
  - NAUSEA [None]
  - ABDOMINAL PAIN UPPER [None]
  - INJURY [None]
  - FEAR OF DEATH [None]
  - BILIARY DYSKINESIA [None]
  - DYSPEPSIA [None]
  - EMOTIONAL DISTRESS [None]
  - DECREASED APPETITE [None]
  - DEPRESSION [None]
  - DIARRHOEA [None]
  - NERVOUSNESS [None]
  - PALPITATIONS [None]
  - ABDOMINAL DISCOMFORT [None]
